FAERS Safety Report 5265867-6 (Version None)
Quarter: 2007Q1

REPORT INFORMATION
  Report Type: 
  Country: None (occurrence: None)
  Receive Date: 20070312
  Receipt Date: 20070312
  Transmission Date: 20070707
  Serious: Yes (Hospitalization)
  Sender: FDA-Public Use
  Company Number: None

PATIENT
  Age: 58 Year
  Sex: Male
  Weight: 106.8 kg

DRUGS (13)
  1. ROSIGLITAZONE [Suspect]
     Indication: DIABETES MELLITUS
     Dosage: 2 MG P.O. DAILY
     Route: 048
     Dates: start: 20070127, end: 20070301
  2. MONTELUKAST NA [Concomitant]
  3. LOSARTAN POSTASSIUM [Concomitant]
  4. TAMSULOSIN HCL [Concomitant]
  5. THEOPHYLLINE (QUALITEST) [Concomitant]
  6. TRAZODONE HCL [Concomitant]
  7. OMEPRAZOLE [Concomitant]
  8. ALBUTEROL [Concomitant]
  9. LORATADINE [Concomitant]
  10. ROSUVASTATIN CA [Concomitant]
  11. VERAPAMIL HCL [Concomitant]
  12. GLYBURIDE [Concomitant]
  13. NITROGLYCERIN [Concomitant]

REACTIONS (1)
  - OEDEMA PERIPHERAL [None]
